FAERS Safety Report 15667308 (Version 1)
Quarter: 2018Q4

REPORT INFORMATION
  Report Type: Spontaneous
  Country: US (occurrence: US)
  Receive Date: 20181128
  Receipt Date: 20181128
  Transmission Date: 20190205
  Serious: No
  Sender: FDA-Public Use
  Company Number: US-ROCHE-2182965

PATIENT
  Age: 44 Year
  Sex: Female

DRUGS (5)
  1. BENADRYL [Concomitant]
     Active Substance: DIPHENHYDRAMINE HYDROCHLORIDE
     Dosage: ONGOING: UNKNOWN
     Route: 065
     Dates: start: 20180907
  2. ZANTAC [Concomitant]
     Active Substance: RANITIDINE HYDROCHLORIDE
     Dosage: ONGOING: UNKNOWN
     Route: 065
     Dates: start: 20180907
  3. OCREVUS [Suspect]
     Active Substance: OCRELIZUMAB
     Indication: MULTIPLE SCLEROSIS
     Dosage: 1ST INFUSION FULL DOSE, 600 MG IV ;ONGOING: UNKNOWN
     Route: 042
     Dates: start: 20180907
  4. RITUXAN [Suspect]
     Active Substance: RITUXIMAB
     Indication: PRODUCT USED FOR UNKNOWN INDICATION
     Dosage: ONGOING: NO
     Route: 065
  5. SOLU-MEDROL [Concomitant]
     Active Substance: METHYLPREDNISOLONE SODIUM SUCCINATE
     Dosage: ONGOING: UNKNOWN
     Route: 065
     Dates: start: 20180907

REACTIONS (4)
  - Pruritus [Unknown]
  - Urticaria [Unknown]
  - Throat irritation [Recovered/Resolved]
  - Dysphagia [Unknown]

NARRATIVE: CASE EVENT DATE: 20180907
